FAERS Safety Report 5254088-9 (Version None)
Quarter: 2007Q1

REPORT INFORMATION
  Report Type: 
  Country: None (occurrence: None)
  Receive Date: 20070302
  Receipt Date: 20070219
  Transmission Date: 20070707
  Serious: Yes (Other)
  Sender: FDA-Public Use
  Company Number: PHBS2007AT02122

PATIENT
  Age: 76 Year
  Sex: Female

DRUGS (1)
  1. ZOMETA [Suspect]
     Indication: MULTIPLE MYELOMA
     Dosage: 4 MG, ONCE MONTHLY
     Route: 065
     Dates: start: 20060101, end: 20061201

REACTIONS (4)
  - BONE DISORDER [None]
  - GINGIVAL ULCERATION [None]
  - JAW OPERATION [None]
  - OSTEONECROSIS [None]
